FAERS Safety Report 4307651-3 (Version None)
Quarter: 2004Q1

REPORT INFORMATION
  Report Type: 
  Country: None (occurrence: None)
  Receive Date: 20040226
  Receipt Date: 20031231
  Transmission Date: 20041129
  Serious: Yes (Life-Threatening)
  Sender: FDA-Public Use
  Company Number: 7131

PATIENT
  Age: 10 Year
  Sex: Male

DRUGS (13)
  1. METHOTREXATE [Suspect]
     Indication: B PRECURSOR TYPE ACUTE LEUKAEMIA
     Dosage: 12.5 MG ONCE, IT
     Dates: start: 20030212, end: 20030212
  2. CYTARABINE [Suspect]
     Indication: B PRECURSOR TYPE ACUTE LEUKAEMIA
     Dosage: 25 MG PER_CYCLE, IT
     Dates: start: 20030212, end: 20030212
  3. DAUNORUBICIN HCL [Suspect]
     Indication: B PRECURSOR TYPE ACUTE LEUKAEMIA
     Dosage: 28 MG PER_CYCLE, IV
     Route: 042
     Dates: start: 20030214, end: 20030215
  4. CYCLOPHOSPHAMIDE [Suspect]
     Indication: B PRECURSOR TYPE ACUTE LEUKAEMIA
     Dosage: 1100, IV
     Route: 042
     Dates: start: 20030213
  5. HYDROCORTISONE [Suspect]
     Indication: B PRECURSOR TYPE ACUTE LEUKAEMIA
     Dosage: 25 MG, IT
     Dates: start: 20030212, end: 20030212
  6. ASPARAGINASE [Suspect]
     Indication: B PRECURSOR TYPE ACUTE LEUKAEMIA
     Dosage: 6600 UNITS, SC
     Route: 058
     Dates: start: 20030218, end: 20030218
  7. MESNA [Suspect]
     Indication: B PRECURSOR TYPE ACUTE LEUKAEMIA
  8. PREDNISOLONE [Suspect]
     Indication: B PRECURSOR TYPE ACUTE LEUKAEMIA
     Dosage: 60 MG/M2 PER_CYCLE
     Dates: start: 20030204, end: 20030204
  9. VINCRISTINE SULFATE [Suspect]
     Indication: B PRECURSOR TYPE ACUTE LEUKAEMIA
     Dosage: IV
     Route: 042
  10. HEPARIN SODIUM [Concomitant]
  11. ALLOPURINOL [Concomitant]
  12. AMPHOTERICIN B [Concomitant]
  13. GRANISETRON [Concomitant]

REACTIONS (12)
  - ANAEMIA [None]
  - CEREBRAL HAEMORRHAGE [None]
  - CEREBRAL VENOUS THROMBOSIS [None]
  - COAGULATION FACTOR XIII LEVEL DECREASED [None]
  - FACIAL PALSY [None]
  - GRAND MAL CONVULSION [None]
  - HEMIPLEGIA [None]
  - HYPOPROTEINAEMIA [None]
  - MEDICAL DEVICE DISCOMFORT [None]
  - SPEECH DISORDER [None]
  - THROMBOCYTOPENIA [None]
  - TREMOR [None]
